FAERS Safety Report 8498034 (Version 3)
Quarter: 2013Q2

REPORT INFORMATION
  Report Type: Spontaneous
  Country: FR (occurrence: FR)
  Receive Date: 20120406
  Receipt Date: 20130423
  Transmission Date: 20140414
  Serious: Yes (Other)
  Sender: FDA-Public Use
  Company Number: FR-ROCHE-1052483

PATIENT
  Age: 32 Year
  Sex: Female

DRUGS (5)
  1. RIVOTRIL [Suspect]
     Indication: MUSCLE SPASMS
     Dosage: 10/6/15/ DROPS DAILY
     Route: 065
  2. RIVOTRIL [Suspect]
     Indication: MUSCLE CONTRACTURE
  3. AMOXICILLINE [Concomitant]
     Indication: TONSILLITIS
  4. SPIFEN [Concomitant]
  5. TANGANIL [Concomitant]

REACTIONS (9)
  - Motor dysfunction [Not Recovered/Not Resolved]
  - Anal sphincter atony [Recovered/Resolved]
  - Disturbance in attention [Recovered/Resolved]
  - Memory impairment [Recovered/Resolved with Sequelae]
  - Urinary tract infection [Recovered/Resolved]
  - Bladder sphincter atony [Recovered/Resolved]
  - Lyme disease [Unknown]
  - Multiple sclerosis [Unknown]
  - Cerebellar atrophy [Unknown]
